FAERS Safety Report 6161975-6 (Version None)
Quarter: 2009Q2

REPORT INFORMATION
  Report Type: 
  Country: None (occurrence: None)
  Receive Date: 20090421
  Receipt Date: 20080530
  Transmission Date: 20091009
  Serious: No
  Sender: FDA-Public Use
  Company Number: US-SOLVAY-00208002426

PATIENT
  Sex: Female

DRUGS (1)
  1. ANDROGEL [Suspect]
     Indication: ACCIDENTAL EXPOSURE
     Dosage: DAILY DOSE:  UNKNOWN
     Route: 062
     Dates: start: 20040101, end: 20050101

REACTIONS (4)
  - ACCIDENTAL EXPOSURE [None]
  - ACNE CYSTIC [None]
  - ALOPECIA [None]
  - DRUG HYPERSENSITIVITY [None]
